FAERS Safety Report 13725857 (Version 1)
Quarter: 2017Q3

REPORT INFORMATION
  Report Type: Spontaneous
  Country: US (occurrence: US)
  Receive Date: 20170705
  Receipt Date: 20170705
  Transmission Date: 20171127
  Serious: Yes (Disabling)
  Sender: FDA-Public Use
  Company Number: None

PATIENT
  Age: 50 Year
  Sex: Male
  Weight: 105.7 kg

DRUGS (6)
  1. ATENOLOL. [Concomitant]
     Active Substance: ATENOLOL
  2. SAGE 2% CHLORHEXIDINE GLUCONATE CLOTH [Suspect]
     Active Substance: CHLORHEXIDINE GLUCONATE
     Indication: INFECTION PROPHYLAXIS
     Dosage: ?          QUANTITY:3 3 IND WRAPED 2 PER;OTHER FREQUENCY:NIGHT BEFORE DAYOR;?
     Route: 061
     Dates: start: 20170621, end: 20170622
  3. TRAMADOL HCL [Concomitant]
     Active Substance: TRAMADOL HYDROCHLORIDE
  4. PREDNISONE. [Concomitant]
     Active Substance: PREDNISONE
  5. ATORVASTATIN CALCIUM. [Concomitant]
     Active Substance: ATORVASTATIN CALCIUM
  6. CHOLECALCIFEROL (VIT D3) [Concomitant]

REACTIONS (1)
  - Rash generalised [None]

NARRATIVE: CASE EVENT DATE: 20170622
